FAERS Safety Report 26055302 (Version 1)
Quarter: 2025Q4

REPORT INFORMATION
  Report Type: Spontaneous
  Country: US (occurrence: None)
  Receive Date: 20251117
  Receipt Date: 20251117
  Transmission Date: 20260117
  Serious: No
  Sender: ALKERMES
  Company Number: US-ALKERMES INC.-ALK-2025-003013

PATIENT
  Age: 57 Year
  Sex: Female
  Weight: 104.31 kg

DRUGS (2)
  1. LYBALVI [Suspect]
     Active Substance: OLANZAPINE\SAMIDORPHAN L-MALATE
     Indication: Bipolar disorder
     Dosage: 10/10 MILLIGRAM, QD
  2. LYBALVI [Suspect]
     Active Substance: OLANZAPINE\SAMIDORPHAN L-MALATE
     Dosage: 5/10 MILLIGRAM, QD

REACTIONS (1)
  - Swelling face [Recovered/Resolved]
